FAERS Safety Report 23346347 (Version 2)
Quarter: 2024Q1

REPORT INFORMATION
  Report Type: Spontaneous
  Country: US (occurrence: US)
  Receive Date: 20231228
  Receipt Date: 20240327
  Transmission Date: 20240410
  Serious: Yes (Hospitalization, Other)
  Sender: FDA-Public Use
  Company Number: US-JNJFOC-20231256222

PATIENT
  Age: 75 Year
  Sex: Female

DRUGS (3)
  1. STELARA [Suspect]
     Active Substance: USTEKINUMAB
     Indication: Product used for unknown indication
     Route: 058
     Dates: start: 202302
  2. STELARA [Suspect]
     Active Substance: USTEKINUMAB
  3. ELIQUIS [Concomitant]
     Active Substance: APIXABAN

REACTIONS (6)
  - Basal cell carcinoma [Unknown]
  - Pulmonary embolism [Unknown]
  - Thrombectomy [Unknown]
  - Influenza [Unknown]
  - Cryptosporidiosis infection [Unknown]
  - Bronchitis [Unknown]

NARRATIVE: CASE EVENT DATE: 20231018
